FAERS Safety Report 10465369 (Version 1)
Quarter: 2014Q3

REPORT INFORMATION
  Report Type: Spontaneous
  Country: DK (occurrence: GB)
  Receive Date: 20140919
  Receipt Date: 20140919
  Transmission Date: 20150326
  Serious: Yes (Hospitalization, Other)
  Sender: FDA-Public Use
  Company Number: GB-FRI-1000070781

PATIENT
  Age: 52 Year

DRUGS (6)
  1. XARELTO [Suspect]
     Active Substance: RIVAROXABAN
     Dosage: 20 MG ONCE DAILY
     Route: 048
     Dates: start: 20140108
  2. IBULEVE [Concomitant]
  3. CITALOPRAM [Suspect]
     Active Substance: CITALOPRAM HYDROBROMIDE
     Indication: OBSESSIVE-COMPULSIVE DISORDER
     Dosage: 30 MG ONCE DAILY
     Route: 048
     Dates: start: 20090507
  4. ASPIRIN. [Concomitant]
     Active Substance: ASPIRIN
  5. NAPROXEN. [Concomitant]
     Active Substance: NAPROXEN
  6. IBUPROFEN. [Concomitant]
     Active Substance: IBUPROFEN

REACTIONS (3)
  - Melaena [Not Recovered/Not Resolved]
  - Haematemesis [Not Recovered/Not Resolved]
  - Off label use [Not Recovered/Not Resolved]

NARRATIVE: CASE EVENT DATE: 20090507
